APPROVED DRUG PRODUCT: PHENTERMINE HYDROCHLORIDE
Active Ingredient: PHENTERMINE HYDROCHLORIDE
Strength: 37.5MG
Dosage Form/Route: CAPSULE;ORAL
Application: A205017 | Product #001 | TE Code: AA
Applicant: NUVO PHARMACEUTICAL INC
Approved: Sep 25, 2014 | RLD: No | RS: Yes | Type: RX